FAERS Safety Report 6162692-9 (Version None)
Quarter: 2009Q2

REPORT INFORMATION
  Report Type: 
  Country: None (occurrence: None)
  Receive Date: 20090417
  Receipt Date: 20090325
  Transmission Date: 20091009
  Serious: Yes (Other)
  Sender: FDA-Public Use
  Company Number: 6044884

PATIENT
  Age: 54 Year
  Sex: Female

DRUGS (7)
  1. LEVOTHYROXINE SODIUM [Suspect]
     Indication: MAJOR DEPRESSION
     Dosage: 1 GM (2 GM,3 IN 1 D)
  2. TRYPTOPHAN, L-(TRYPTOPHAN, L-) [Suspect]
     Indication: MAJOR DEPRESSION
  3. CLOMIPRAMINE HCL [Suspect]
     Indication: MAJOR DEPRESSION
     Dosage: 250 MG (250 MG,1 IN 1 D) ORAL
     Route: 048
  4. LITHIUM CARBONATE [Suspect]
     Indication: MAJOR DEPRESSION
     Dosage: 800 MG (800 MG,1 IN 1 D)
  5. QUETIAPINE FUMARATE [Suspect]
     Indication: MAJOR DEPRESSION
     Dosage: 800 MG (800 MG,1 IN 1 D)
  6. ETOMIDATE [Concomitant]
  7. SUXAMETHONIUM (SUXAMETHONIUM) [Concomitant]

REACTIONS (3)
  - ANTIPSYCHOTIC DRUG LEVEL BELOW THERAPEUTIC [None]
  - GRAND MAL CONVULSION [None]
  - STATUS EPILEPTICUS [None]
